FAERS Safety Report 18120147 (Version 3)
Quarter: 2020Q4

REPORT INFORMATION
  Report Type: Report from Study
  Country: GB (occurrence: GB)
  Receive Date: 20200806
  Receipt Date: 20201130
  Transmission Date: 20210113
  Serious: Yes (Hospitalization, Other)
  Sender: FDA-Public Use
  Company Number: GB-BRISTOL-MYERS SQUIBB COMPANY-BMS-2020-063233

PATIENT
  Age: 84 Year
  Sex: Female

DRUGS (5)
  1. ABATACEPT [Suspect]
     Active Substance: ABATACEPT
     Indication: RHEUMATOID ARTHRITIS
     Dosage: 125 MILLIGRAM, QWK
     Route: 058
     Dates: start: 20200318
  2. ABATACEPT [Suspect]
     Active Substance: ABATACEPT
     Dosage: UNK
     Route: 065
     Dates: start: 20200507, end: 20200529
  3. BENZYDAMINE [Concomitant]
     Active Substance: BENZYDAMINE
     Indication: ARTHROPOD STING
     Dosage: UNK
     Dates: start: 20200814
  4. ABATACEPT [Suspect]
     Active Substance: ABATACEPT
     Dosage: UNK
     Route: 065
     Dates: start: 20200612, end: 20200703
  5. ABATACEPT [Suspect]
     Active Substance: ABATACEPT
     Dosage: INJECTION
     Route: 065
     Dates: start: 20200724

REACTIONS (6)
  - Glossodynia [Unknown]
  - Pruritus [Unknown]
  - Oral candidiasis [Unknown]
  - Wound infection [Unknown]
  - Arthropod sting [Unknown]
  - Dry skin [Unknown]

NARRATIVE: CASE EVENT DATE: 20200927
